FAERS Safety Report 5788540-4 (Version None)
Quarter: 2008Q2

REPORT INFORMATION
  Report Type: 
  Country: None (occurrence: None)
  Receive Date: 20080626
  Receipt Date: 20080618
  Transmission Date: 20081010
  Serious: Yes (Other)
  Sender: FDA-Public Use
  Company Number: US-JNJFOC-20080604948

PATIENT
  Sex: Female
  Weight: 78.02 kg

DRUGS (4)
  1. TOPAMAX [Suspect]
     Route: 048
  2. TOPAMAX [Suspect]
     Indication: PAIN MANAGEMENT
     Route: 048
  3. TOPAMAX [Suspect]
     Indication: BIPOLAR DISORDER
     Route: 048
  4. HYDROCODONE [Concomitant]
     Indication: PAIN

REACTIONS (18)
  - ABDOMINAL PAIN UPPER [None]
  - ACNE [None]
  - AMNESIA [None]
  - BACK PAIN [None]
  - BLADDER PAIN [None]
  - CONVULSION [None]
  - DIARRHOEA [None]
  - DIZZINESS [None]
  - FATIGUE [None]
  - INSOMNIA [None]
  - MOOD SWINGS [None]
  - PARAESTHESIA [None]
  - SOMNOLENCE [None]
  - SUICIDAL IDEATION [None]
  - TREMOR [None]
  - VAGINAL DISCHARGE [None]
  - VOMITING [None]
  - WEIGHT DECREASED [None]
